FAERS Safety Report 8385779-9 (Version None)
Quarter: 2012Q2

REPORT INFORMATION
  Report Type: 
  Country: None (occurrence: None)
  Receive Date: 20120523
  Receipt Date: 20120523
  Transmission Date: 20120825
  Serious: Yes (Life-Threatening, Hospitalization)
  Sender: FDA-Public Use
  Company Number: None

PATIENT
  Age: 53 Year
  Sex: Female
  Weight: 52.6173 kg

DRUGS (1)
  1. NITROFURANTOIN [Suspect]
     Indication: URINARY TRACT INFECTION
     Dosage: 100MG TWICE A DAY PO
     Route: 048
     Dates: start: 20120507, end: 20120508

REACTIONS (4)
  - BRAIN CONTUSION [None]
  - FALL [None]
  - SKULL FRACTURE [None]
  - LOSS OF CONSCIOUSNESS [None]
